FAERS Safety Report 7227442-3 (Version None)
Quarter: 2011Q1

REPORT INFORMATION
  Report Type: 
  Country: None (occurrence: None)
  Receive Date: 20110105
  Receipt Date: 20101224
  Transmission Date: 20110831
  Serious: Yes (Other)
  Sender: FDA-Public Use
  Company Number: JP-GDP-10409657

PATIENT
  Sex: Female

DRUGS (1)
  1. DIFFERIN [Suspect]
     Indication: ACNE
     Dosage: TOPICAL
     Dates: start: 20100118, end: 20100208

REACTIONS (2)
  - ABORTION SPONTANEOUS [None]
  - DRUG EXPOSURE BEFORE PREGNANCY [None]
